FAERS Safety Report 11747945 (Version 1)
Quarter: 2015Q4

REPORT INFORMATION
  Report Type: Spontaneous
  Country: BR (occurrence: BR)
  Receive Date: 20151117
  Receipt Date: 20151117
  Transmission Date: 20160304
  Serious: Yes (Other)
  Sender: FDA-Public Use
  Company Number: BR-SHIRE-BR201513949

PATIENT
  Age: 8 Year
  Sex: Male
  Weight: 36 kg

DRUGS (3)
  1. RISPERIDONE. [Concomitant]
     Active Substance: RISPERIDONE
     Dosage: 1 MG, 1X/DAY:QD (IN THE MORNING)
     Route: 065
  2. RISPERIDONE. [Concomitant]
     Active Substance: RISPERIDONE
     Indication: AUTISM
     Dosage: 2 MG, 1X/DAY:QD (AT NIGHT)
     Route: 065
  3. VENVANSE [Suspect]
     Active Substance: LISDEXAMFETAMINE DIMESYLATE
     Indication: AUTISM
     Dosage: UNK UNK(50 MG CAPSULE BREAK APART IN DOSES OF 25 MG)1X/DAY:QD
     Route: 048
     Dates: start: 20151110

REACTIONS (6)
  - Abnormal behaviour [Unknown]
  - Wrong technique in product usage process [Recovered/Resolved]
  - Product use issue [Recovered/Resolved]
  - Shock [Unknown]
  - Mydriasis [Unknown]
  - Decreased appetite [Unknown]

NARRATIVE: CASE EVENT DATE: 20151110
